FAERS Safety Report 9276475 (Version 3)
Quarter: 2013Q3

REPORT INFORMATION
  Report Type: Report from Study
  Country: NL (occurrence: NL)
  Receive Date: 20130507
  Receipt Date: 20130925
  Transmission Date: 20140515
  Serious: Yes (Other)
  Sender: FDA-Public Use
  Company Number: NL-TEVA-402582ISR

PATIENT
  Age: 41 Year
  Sex: Female

DRUGS (3)
  1. COPAXONE [Suspect]
     Indication: MULTIPLE SCLEROSIS
     Dosage: 20 MILLIGRAM DAILY;
     Route: 058
     Dates: start: 20130128
  2. MICROGYNON [Concomitant]
  3. SYMBICORT [Concomitant]
     Dosage: INHALER, 2 TIMES DAILY

REACTIONS (2)
  - Immediate post-injection reaction [Recovered/Resolved]
  - Loss of consciousness [Recovered/Resolved]
